FAERS Safety Report 7754321-5 (Version None)
Quarter: 2011Q3

REPORT INFORMATION
  Report Type: 
  Country: None (occurrence: None)
  Receive Date: 20110913
  Receipt Date: 20110901
  Transmission Date: 20111222
  Serious: Yes (Death)
  Sender: FDA-Public Use
  Company Number: UTC-009145

PATIENT
  Age: 52 Year
  Sex: Male
  Weight: 54.09 kg

DRUGS (4)
  1. TRACLEER [Concomitant]
  2. DIURETICS (DIURETICS) [Concomitant]
  3. TYVASO [Suspect]
     Indication: COR PULMONALE CHRONIC
     Dosage: 18-54 MCGS (4 IN 1 D) , INHALATION
     Route: 055
     Dates: start: 20101027
  4. COUMADIN [Concomitant]

REACTIONS (1)
  - SUDDEN DEATH [None]
